FAERS Safety Report 5034176-2 (Version None)
Quarter: 2006Q2

REPORT INFORMATION
  Report Type: 
  Country: None (occurrence: None)
  Receive Date: 20060626
  Receipt Date: 20060605
  Transmission Date: 20061013
  Serious: Yes (Disabling, Other)
  Sender: FDA-Public Use
  Company Number: US-GLAXOSMITHKLINE-A0607918A

PATIENT
  Age: 32 Year
  Sex: Female
  Weight: 61.4 kg

DRUGS (3)
  1. WELLBUTRIN XL [Suspect]
     Indication: DEPRESSION
     Dosage: 300MG PER DAY
     Route: 048
     Dates: start: 20060320, end: 20060501
  2. PAXIL [Concomitant]
  3. ESTROSTEP [Concomitant]

REACTIONS (1)
  - DYSPNOEA [None]
